FAERS Safety Report 25930091 (Version 2)
Quarter: 2025Q4

REPORT INFORMATION
  Report Type: Report from Study
  Country: US (occurrence: US)
  Receive Date: 20251016
  Receipt Date: 20251030
  Transmission Date: 20260118
  Serious: No
  Sender: ACADIA PHARMACEUTICALS
  Company Number: US-ACADIA PHARMACEUTICALS INC.-ACA-2025-TRF-011176

PATIENT
  Sex: Female

DRUGS (1)
  1. DAYBUE [Suspect]
     Active Substance: TROFINETIDE
     Indication: Rett syndrome
     Dosage: 50 MILLILITER, BID
     Route: 048

REACTIONS (7)
  - Salivary hypersecretion [Not Recovered/Not Resolved]
  - Drooling [Recovering/Resolving]
  - Tooth loss [Unknown]
  - Tooth injury [Unknown]
  - Wheelchair user [Unknown]
  - Fall [Unknown]
  - Product dose omission issue [Unknown]
